FAERS Safety Report 17803943 (Version 1)
Quarter: 2020Q2

REPORT INFORMATION
  Report Type: Spontaneous
  Country: FR (occurrence: FR)
  Receive Date: 20200519
  Receipt Date: 20200519
  Transmission Date: 20200714
  Serious: Yes (Death, Hospitalization)
  Sender: FDA-Public Use
  Company Number: FR-TEVA-2020-FR-1236314

PATIENT
  Age: 81 Year
  Sex: Female
  Weight: 83 kg

DRUGS (8)
  1. PREDNISONE. [Suspect]
     Active Substance: PREDNISONE
     Indication: RHEUMATOID ARTHRITIS
     Route: 048
     Dates: end: 20200310
  2. OXYBUTYNINE [Concomitant]
     Active Substance: OXYBUTYNIN CHLORIDE
     Route: 065
  3. CELEBREX [Suspect]
     Active Substance: CELECOXIB
     Indication: RHEUMATOID ARTHRITIS
     Route: 048
     Dates: end: 20200310
  4. PARACETAMOL [Concomitant]
     Active Substance: ACETAMINOPHEN
  5. VOLTARENE EMULGEL 1 %, GEL [Concomitant]
     Active Substance: DICLOFENAC DIETHYLAMINE
  6. OMEPRAZOLE. [Concomitant]
     Active Substance: OMEPRAZOLE
  7. DIFFU K, G?LULE [Concomitant]
     Active Substance: POTASSIUM CHLORIDE
  8. RISEDRONATE MONOSODIQUE [Concomitant]
     Active Substance: RISEDRONATE SODIUM

REACTIONS (3)
  - Condition aggravated [Fatal]
  - Pneumocystis jirovecii pneumonia [Fatal]
  - Pneumonia pseudomonal [Fatal]

NARRATIVE: CASE EVENT DATE: 20200310
